FAERS Safety Report 9848352 (Version 1)
Quarter: 2013Q4

REPORT INFORMATION
  Report Type: Spontaneous
  Country: US (occurrence: None)
  Receive Date: 20131224
  Receipt Date: 20131224
  Transmission Date: 20140711
  Serious: Yes (Other)
  Sender: FDA-Public Use
  Company Number: PHEH2012US023569

PATIENT
  Age: 82 Year
  Sex: Male
  Weight: 82.3 kg

DRUGS (5)
  1. EXJADE (*CGP 72670*) DISPERSIBLE TABLET [Suspect]
     Indication: IRON OVERLOAD
     Dosage: 500 MG, 3 TIMES PER DAY, ORAL
     Route: 048
     Dates: start: 20120927, end: 20121227
  2. ASPIRIN (ACETYSALICYLIC ACID) [Concomitant]
  3. PLAVIX (CLOPIDOGREL BISULFATE) (CLOPIDOGREL BISULFATE) [Concomitant]
  4. LIPITOR (ATORVASTATIN CALCIUM) [Concomitant]
  5. DIURETICS (NO INGREDIENTS/SUBSTANCES) [Concomitant]

REACTIONS (4)
  - Duodenal ulcer haemorrhage [None]
  - Blood disorder [None]
  - Drug hypersensitivity [None]
  - Faeces discoloured [None]
